FAERS Safety Report 8821225 (Version 1)
Quarter: 2012Q4

REPORT INFORMATION
  Report Type: 
  Country: FR (occurrence: FR)
  Receive Date: 20121002
  Receipt Date: 20121002
  Transmission Date: 20130627
  Serious: Yes (Life-Threatening, Hospitalization, Other)
  Sender: FDA-Public Use
  Company Number: FR-BRISTOL-MYERS SQUIBB COMPANY-16997942

PATIENT

DRUGS (1)
  1. ONGLYZA TABS [Suspect]

REACTIONS (1)
  - Pancreatitis acute [Unknown]
